FAERS Safety Report 6394201-3 (Version None)
Quarter: 2009Q4

REPORT INFORMATION
  Report Type: 
  Country: None (occurrence: None)
  Receive Date: 20091008
  Receipt Date: 20090925
  Transmission Date: 20100525
  Serious: Yes (Other)
  Sender: FDA-Public Use
  Company Number: AT-GILEAD-2009-0024480

PATIENT
  Age: 53 Year
  Sex: Male

DRUGS (21)
  1. VIREAD [Suspect]
     Indication: HIV INFECTION
     Dates: start: 20011201, end: 20061101
  2. ZIDOVUDINE [Concomitant]
     Indication: ANTIRETROVIRAL THERAPY
     Dates: start: 19930701, end: 19931101
  3. ZIDOVUDINE [Concomitant]
     Dates: start: 19941101, end: 19950401
  4. ZIDOVUDINE [Concomitant]
     Dates: start: 19950901, end: 19960901
  5. 3TC [Concomitant]
     Indication: ANTIRETROVIRAL THERAPY
     Dates: start: 19950901, end: 20010901
  6. 3TC [Concomitant]
     Dates: start: 20030201, end: 20070701
  7. VIDEX [Concomitant]
     Indication: ANTIRETROVIRAL THERAPY
     Dates: start: 19931101, end: 19940501
  8. VIDEX [Concomitant]
     Dates: start: 19950401, end: 19950901
  9. DDC [Concomitant]
     Indication: ANTIRETROVIRAL THERAPY
     Dates: start: 19940501, end: 19950401
  10. RITONAVIR [Concomitant]
     Indication: ANTIRETROVIRAL THERAPY
     Dates: start: 19960401, end: 19960601
  11. RITONAVIR [Concomitant]
     Dates: start: 20020201, end: 20070701
  12. D4T [Concomitant]
     Indication: ANTIRETROVIRAL THERAPY
     Dates: start: 19960601, end: 19990201
  13. D4T [Concomitant]
     Dates: start: 20010901, end: 20030601
  14. INDINAVIR [Concomitant]
     Indication: ANTIRETROVIRAL THERAPY
     Dates: start: 19960601, end: 20000101
  15. INDINAVIR [Concomitant]
     Dates: start: 20010901, end: 20020201
  16. EFAVIRENZ [Concomitant]
     Indication: ANTIRETROVIRAL THERAPY
     Dates: start: 20000101, end: 20000301
  17. EFAVIRENZ [Concomitant]
     Dates: start: 20010901, end: 20061101
  18. NEVIRAPINE [Concomitant]
     Indication: ANTIRETROVIRAL THERAPY
     Dates: start: 20000301, end: 20010901
  19. LOPINAVIR [Concomitant]
     Indication: ANTIRETROVIRAL THERAPY
     Dates: start: 20020201, end: 20070701
  20. ABACAVIR [Concomitant]
     Indication: ANTIRETROVIRAL THERAPY
     Dates: start: 19990201, end: 20010901
  21. ABACAVIR [Concomitant]
     Dates: start: 20030601, end: 20070701

REACTIONS (4)
  - FANCONI SYNDROME ACQUIRED [None]
  - OSTEOPENIA [None]
  - OSTEOPOROSIS [None]
  - PAIN IN EXTREMITY [None]
